FAERS Safety Report 6534117-2 (Version None)
Quarter: 2010Q1

REPORT INFORMATION
  Report Type: 
  Country: None (occurrence: None)
  Receive Date: 20100112
  Receipt Date: 20100104
  Transmission Date: 20100710
  Serious: Yes (Hospitalization, Other)
  Sender: FDA-Public Use
  Company Number: US-BAYER-200936647NA

PATIENT
  Age: 32 Year
  Sex: Female
  Weight: 77 kg

DRUGS (1)
  1. MIRENA [Suspect]
     Indication: CONTRACEPTION
     Dosage: CONTINUOUS
     Route: 015
     Dates: start: 20070131, end: 20091013

REACTIONS (4)
  - ABORTION INCOMPLETE [None]
  - ANTEPARTUM HAEMORRHAGE [None]
  - MEDICAL DEVICE COMPLICATION [None]
  - PREGNANCY WITH CONTRACEPTIVE DEVICE [None]
